FAERS Safety Report 6061207-3 (Version None)
Quarter: 2009Q1

REPORT INFORMATION
  Report Type: 
  Country: None (occurrence: None)
  Receive Date: 20090202
  Receipt Date: 20090202
  Transmission Date: 20090719
  Serious: Yes (Other)
  Sender: FDA-Public Use
  Company Number: CA-ABBOTT-09P-028-0496927-00

PATIENT
  Sex: Female
  Weight: 59.02 kg

DRUGS (1)
  1. HUMIRA [Suspect]
     Indication: CROHN'S DISEASE
     Route: 058
     Dates: start: 20080417

REACTIONS (8)
  - ASTHENIA [None]
  - BREATH SOUNDS ABNORMAL [None]
  - LYMPHADENOPATHY [None]
  - ORAL HERPES [None]
  - OROPHARYNGEAL PAIN [None]
  - PALLOR [None]
  - UPPER RESPIRATORY TRACT INFECTION [None]
  - WEIGHT DECREASED [None]
